FAERS Safety Report 9405154 (Version 2)
Quarter: 2013Q3

REPORT INFORMATION
  Report Type: Spontaneous
  Country: AU (occurrence: AU)
  Receive Date: 20130717
  Receipt Date: 20130803
  Transmission Date: 20140515
  Serious: Yes (Death, Other)
  Sender: FDA-Public Use
  Company Number: AU-B.I. PHARMACEUTICALS,INC./RIDGEFIELD-2013-AU-00858AU

PATIENT
  Age: 90 Year
  Sex: Male
  Weight: 41 kg

DRUGS (12)
  1. PRADAXA [Suspect]
     Indication: CEREBROVASCULAR ACCIDENT PROPHYLAXIS
     Dosage: 220 MG
     Route: 048
     Dates: start: 20110905
  2. PRADAXA [Suspect]
     Indication: ATRIAL FIBRILLATION
  3. AVANZA SOLTAB [Concomitant]
     Dosage: 15 MG
     Route: 048
  4. COLCHICINE [Concomitant]
     Route: 048
  5. DOCUSATE SODIUM\SENNOSIDES [Concomitant]
     Dosage: 50 MG/8 MG
     Route: 048
  6. METFORMIN HYDROCHLORIDE [Concomitant]
     Dosage: 500 MG
     Route: 048
  7. MOVICOL [Concomitant]
     Dosage: 13.125 G / 350.7 MG/ 46.6 MG/ 178.5 MG
     Route: 048
  8. OCTREOTIDE [Concomitant]
     Dosage: 0.6667 MG
     Route: 030
  9. OXYCONTIN [Concomitant]
     Dosage: 1.3333 MG
     Route: 048
  10. RAMIPRIL [Concomitant]
     Dosage: 2.5 MG
     Route: 048
  11. SERETIDE [Concomitant]
     Dosage: 125 MCG - 25 MCG/DOSE
     Route: 055
  12. SPIRIVA [Concomitant]
     Dosage: 18 MCG
     Route: 055

REACTIONS (12)
  - Malignant neoplasm progression [Fatal]
  - Decreased appetite [Unknown]
  - Early satiety [Unknown]
  - Constipation [Unknown]
  - Dyspnoea [Unknown]
  - Cough [Unknown]
  - Lethargy [Unknown]
  - Loss of consciousness [Unknown]
  - Fall [Unknown]
  - Pain [Unknown]
  - Nocturia [Unknown]
  - Asthenia [Unknown]
